FAERS Safety Report 7086315-X (Version None)
Quarter: 2010Q4

REPORT INFORMATION
  Report Type: 
  Country: None (occurrence: None)
  Receive Date: 20101105
  Receipt Date: 20101025
  Transmission Date: 20110411
  Serious: Yes (Hospitalization, Other)
  Sender: FDA-Public Use
  Company Number: US-ELI_LILLY_AND_COMPANY-US201010006424

PATIENT
  Sex: Female

DRUGS (1)
  1. CYMBALTA [Suspect]
     Dosage: 120 MG, UNK
     Dates: end: 20101025

REACTIONS (3)
  - AMMONIA [None]
  - HEPATIC CIRRHOSIS [None]
  - HOSPITALISATION [None]
